FAERS Safety Report 21524997 (Version 1)
Quarter: 2022Q4

REPORT INFORMATION
  Report Type: Spontaneous
  Country: US (occurrence: US)
  Receive Date: 20221030
  Receipt Date: 20221030
  Transmission Date: 20230112
  Serious: No
  Sender: FDA-Public Use
  Company Number: US-TEVA-2022-US-2081187

PATIENT

DRUGS (1)
  1. PIOGLITAZONE [Suspect]
     Active Substance: PIOGLITAZONE
     Indication: Product used for unknown indication
     Route: 065
     Dates: start: 202209

REACTIONS (7)
  - Drug hypersensitivity [Unknown]
  - Dermatitis allergic [Unknown]
  - Urticaria [Unknown]
  - Pruritus [Unknown]
  - Skin swelling [Unknown]
  - Blister [Unknown]
  - Discomfort [Unknown]

NARRATIVE: CASE EVENT DATE: 20220901
